FAERS Safety Report 12810453 (Version 1)
Quarter: 2016Q4

REPORT INFORMATION
  Report Type: Report from Study
  Country: PK (occurrence: PK)
  Receive Date: 20161005
  Receipt Date: 20161005
  Transmission Date: 20170207
  Serious: Yes (Other)
  Sender: FDA-Public Use
  Company Number: PHHY2016PK134635

PATIENT
  Age: 44 Year
  Sex: Female
  Weight: 52 kg

DRUGS (2)
  1. AFINITOR [Suspect]
     Active Substance: EVEROLIMUS
     Dosage: 5 MG, QD
     Route: 048
     Dates: start: 20160926
  2. AFINITOR [Suspect]
     Active Substance: EVEROLIMUS
     Indication: BREAST CANCER
     Dosage: 10 MG, QD
     Route: 048
     Dates: start: 20160815, end: 20160912

REACTIONS (8)
  - Pulmonary congestion [Recovering/Resolving]
  - Dizziness [Unknown]
  - Pneumonitis [Unknown]
  - Blood glucose increased [Unknown]
  - Decreased appetite [Unknown]
  - Cough [Unknown]
  - Dyspnoea [Unknown]
  - Lipids increased [Unknown]

NARRATIVE: CASE EVENT DATE: 20160912
